FAERS Safety Report 4331652-2 (Version None)
Quarter: 2004Q2

REPORT INFORMATION
  Report Type: 
  Country: None (occurrence: None)
  Receive Date: 20040405
  Receipt Date: 20040324
  Transmission Date: 20050107
  Serious: Yes (Life-Threatening)
  Sender: FDA-Public Use
  Company Number: FR-MERCK-0403FRA00103

PATIENT
  Age: 44 Year
  Sex: Male

DRUGS (13)
  1. AMIKACIN SULFATE [Concomitant]
     Indication: PNEUMONIA
     Route: 042
     Dates: end: 20040128
  2. AMIKACIN SULFATE [Concomitant]
     Route: 042
     Dates: start: 20040207, end: 20040209
  3. AMPHOTERICIN B AND CHOLESTEROL AND DISTEAROYLPHOSPHATIDYLGLYCEROL AND [Concomitant]
     Indication: ASPERGILLOSIS
     Route: 065
     Dates: start: 20040204
  4. CANCIDAS [Suspect]
     Indication: ASPERGILLOSIS
     Route: 041
     Dates: start: 20040121, end: 20040207
  5. CLAVULANIC ACID [Suspect]
     Indication: PNEUMONIA
     Route: 041
     Dates: start: 20040121, end: 20040207
  6. CLAVULANIC ACID [Suspect]
     Route: 041
     Dates: start: 20040211, end: 20040212
  7. CYCLOSPORINE [Suspect]
     Indication: PROPHYLAXIS
     Route: 048
     Dates: start: 20031219, end: 20040222
  8. GANCICLOVIR SODIUM [Suspect]
     Indication: RESPIRATORY SYNCYTIAL VIRUS INFECTION
     Route: 041
     Dates: start: 20040121, end: 20040207
  9. OFLOXACIN [Suspect]
     Indication: PNEUMONIA
     Route: 041
     Dates: start: 20040129, end: 20040207
  10. TICARCILLIN DISODIUM [Suspect]
     Indication: PNEUMONIA
     Route: 041
     Dates: start: 20040121, end: 20040207
  11. TICARCILLIN DISODIUM [Suspect]
     Route: 041
     Dates: start: 20040211, end: 20040212
  12. VANCOMYCIN [Concomitant]
     Indication: PNEUMONIA
     Route: 041
     Dates: start: 20040129, end: 20040214
  13. VORICONAZOLE [Suspect]
     Indication: ASPERGILLOSIS
     Route: 041
     Dates: start: 20040105, end: 20040210

REACTIONS (9)
  - ACIDOSIS [None]
  - ACUTE PULMONARY OEDEMA [None]
  - ACUTE RESPIRATORY DISTRESS SYNDROME [None]
  - BLOOD CREATININE INCREASED [None]
  - ENCEPHALOPATHY [None]
  - MULTI-ORGAN FAILURE [None]
  - PNEUMONIA RESPIRATORY SYNCYTIAL VIRAL [None]
  - PNEUMONIA STAPHYLOCOCCAL [None]
  - RENAL FAILURE [None]
